FAERS Safety Report 9133703 (Version 1)
Quarter: 2013Q1

REPORT INFORMATION
  Report Type: Spontaneous
  Country: HR (occurrence: HR)
  Receive Date: 20130302
  Receipt Date: 20130302
  Transmission Date: 20140127
  Serious: Yes (Life-Threatening)
  Sender: FDA-Public Use
  Company Number: HR-TEVA-387968ISR

PATIENT
  Age: 75 Year
  Sex: Male

DRUGS (5)
  1. KLAVOCIN [Suspect]
     Indication: URINARY TRACT INFECTION
     Route: 042
     Dates: start: 20130129, end: 20130129
  2. GENTAMICIN [Concomitant]
     Indication: URINARY TRACT INFECTION
     Route: 042
     Dates: start: 20130129
  3. CONTROLOC [Concomitant]
     Indication: GASTROOESOPHAGEAL REFLUX DISEASE
     Dosage: 20 MILLIGRAM DAILY;
     Route: 048
  4. EBANTRIL [Concomitant]
     Indication: HYPERTENSION
     Dosage: 60 MILLIGRAM DAILY;
     Route: 048
  5. NORPREXANIL [Concomitant]
     Indication: HYPERTENSION
     Dosage: 1 DOSAGE FORMS DAILY; AMLODIPINE 10 MG + PERINDOPRIL 10 MG
     Route: 048

REACTIONS (7)
  - Anaphylactic reaction [Unknown]
  - Hypotension [Unknown]
  - Urticaria [Unknown]
  - Rash [Unknown]
  - Eczema [Unknown]
  - Dyspnoea [Unknown]
  - Body temperature increased [Unknown]
